FAERS Safety Report 6317037-8 (Version None)
Quarter: 2009Q3

REPORT INFORMATION
  Report Type: 
  Country: None (occurrence: None)
  Receive Date: 20090820
  Receipt Date: 20090812
  Transmission Date: 20100115
  Serious: Yes (Hospitalization)
  Sender: FDA-Public Use
  Company Number: US-AMGEN-QUU359917

PATIENT
  Sex: Female

DRUGS (1)
  1. ENBREL [Suspect]
     Indication: RHEUMATOID ARTHRITIS
     Route: 058
     Dates: start: 20010201

REACTIONS (4)
  - ABDOMINAL PAIN [None]
  - DENTAL CARIES [None]
  - IMPAIRED GASTRIC EMPTYING [None]
  - TOOTH INFECTION [None]
